FAERS Safety Report 9927843 (Version 1)
Quarter: 2014Q1

REPORT INFORMATION
  Report Type: Spontaneous
  Country: DE (occurrence: None)
  Receive Date: 20140221
  Receipt Date: 20140221
  Transmission Date: 20141002
  Serious: Yes (Other)
  Sender: FDA-Public Use
  Company Number: 2188696

PATIENT
  Age: 52 Year
  Sex: Male
  Weight: 100 kg

DRUGS (2)
  1. (GEMCITABINE HYDROCHLORIDE) [Suspect]
     Indication: SARCOMA METASTATIC
     Dosage: INTRAVENOUS (NOT OTHERWISE SPECIFIED)?
     Route: 042
     Dates: start: 20140122
  2. (DOCETAXEL) [Suspect]
     Indication: SARCOMA METASTATIC
     Dosage: INTRAVENOUS (NOT OTHERWISE SPECIFIED)?
     Route: 042
     Dates: start: 20140122

REACTIONS (2)
  - Visual impairment [None]
  - Venous occlusion [None]
